FAERS Safety Report 7851970-0 (Version None)
Quarter: 2011Q4

REPORT INFORMATION
  Report Type: 
  Country: None (occurrence: None)
  Receive Date: 20111026
  Receipt Date: 20111020
  Transmission Date: 20120403
  Serious: Yes (Hospitalization)
  Sender: FDA-Public Use
  Company Number: ES-EISAI INC-E2020-09876-SPO-ES

PATIENT
  Age: 87 Year
  Sex: Female

DRUGS (6)
  1. ARICEPT [Suspect]
     Indication: DEMENTIA
     Route: 048
     Dates: start: 20100712
  2. LERCADIP [Concomitant]
     Indication: HYPERTENSION
     Dates: start: 20100902
  3. SEROQUEL [Interacting]
     Indication: AGITATION
     Dosage: UNKNOWN
     Route: 048
     Dates: start: 20110519, end: 20110525
  4. ASPIRIN [Interacting]
     Indication: THROMBOSIS PROPHYLAXIS
     Route: 048
     Dates: start: 20110314, end: 20110525
  5. LEXATIN [Concomitant]
     Indication: INSOMNIA
     Dates: start: 20110506
  6. CO VALS [Concomitant]
     Indication: HYPERTENSION
     Dates: start: 20100828

REACTIONS (2)
  - IRON DEFICIENCY ANAEMIA [None]
  - DRUG INTERACTION [None]
